FAERS Safety Report 13125651 (Version 3)
Quarter: 2017Q1

REPORT INFORMATION
  Report Type: Spontaneous
  Country: FR (occurrence: FR)
  Receive Date: 20170118
  Receipt Date: 20170316
  Transmission Date: 20170428
  Serious: Yes (Hospitalization, Other)
  Sender: FDA-Public Use
  Company Number: FR-PFIZER INC-2017016886

PATIENT
  Age: 54 Year
  Sex: Male

DRUGS (13)
  1. ZYVOXID [Suspect]
     Active Substance: LINEZOLID
     Indication: DEVICE RELATED INFECTION
     Dosage: 600 MG, 2X/DAY
     Route: 048
     Dates: start: 201611, end: 20161218
  2. SOLUPRED /00016217/ [Concomitant]
     Active Substance: PREDNISOLONE
     Dosage: UNK
  3. MIANSERIN [Concomitant]
     Active Substance: MIANSERIN
     Dosage: UNK
  4. TAHOR [Concomitant]
     Active Substance: ATORVASTATIN CALCIUM
     Dosage: UNK
  5. XATRAL [Concomitant]
     Active Substance: ALFUZOSIN
     Dosage: UNK
  6. XANAX [Concomitant]
     Active Substance: ALPRAZOLAM
     Dosage: UNK
  7. LASILIX /00032601/ [Concomitant]
     Active Substance: FUROSEMIDE
     Dosage: UNK
  8. INEXIUM /01479302/ [Concomitant]
     Active Substance: ESOMEPRAZOLE MAGNESIUM
     Dosage: UNK
  9. NEORAL [Concomitant]
     Active Substance: CYCLOSPORINE
     Dosage: UNK
  10. LYRICA [Concomitant]
     Active Substance: PREGABALIN
     Dosage: UNK
  11. CEFEPIME [Suspect]
     Active Substance: CEFEPIME HYDROCHLORIDE
     Indication: DEVICE RELATED INFECTION
     Dosage: 2 G, 2X/DAY
     Route: 042
     Dates: start: 20161121, end: 20161218
  12. CELLCEPT [Concomitant]
     Active Substance: MYCOPHENOLATE MOFETIL\MYCOPHENOLATE MOFETIL HYDROCHLORIDE
     Dosage: UNK
  13. KARDEGIC [Concomitant]
     Active Substance: ASPIRIN LYSINE
     Dosage: UNK

REACTIONS (4)
  - Haemolytic anaemia [Recovered/Resolved]
  - Aplasia pure red cell [Not Recovered/Not Resolved]
  - Acute kidney injury [Recovered/Resolved]
  - Thrombocytopenia [Recovered/Resolved]

NARRATIVE: CASE EVENT DATE: 20161218
